FAERS Safety Report 13177762 (Version 1)
Quarter: 2017Q1

REPORT INFORMATION
  Report Type: Spontaneous
  Country: US (occurrence: US)
  Receive Date: 20170201
  Receipt Date: 20170201
  Transmission Date: 20170428
  Serious: No
  Sender: FDA-Public Use
  Company Number: US-CELGENEUS-USA-2016110681

PATIENT
  Sex: Male

DRUGS (2)
  1. REVLIMID [Suspect]
     Active Substance: LENALIDOMIDE
     Indication: PLASMA CELL MYELOMA
     Dosage: 10 MILLIGRAM
     Route: 048
     Dates: start: 20161007, end: 20161229
  2. REVLIMID [Suspect]
     Active Substance: LENALIDOMIDE
     Dosage: 25 MILLIGRAM
     Route: 048
     Dates: start: 201610

REACTIONS (9)
  - Dizziness [Unknown]
  - Rash [Unknown]
  - Dysphonia [Unknown]
  - Asthenia [Unknown]
  - Rhinorrhoea [Unknown]
  - Muscle spasms [Unknown]
  - Ageusia [Unknown]
  - Fatigue [Unknown]
  - Anosmia [Unknown]

NARRATIVE: CASE EVENT DATE: 2016
